APPROVED DRUG PRODUCT: METOCLOPRAMIDE HYDROCHLORIDE
Active Ingredient: METOCLOPRAMIDE HYDROCHLORIDE
Strength: EQ 10MG BASE
Dosage Form/Route: TABLET, ORALLY DISINTEGRATING;ORAL
Application: A202191 | Product #002
Applicant: NOVEL LABORATORIES INC
Approved: Aug 15, 2014 | RLD: No | RS: Yes | Type: RX